FAERS Safety Report 6271792-4 (Version None)
Quarter: 2009Q3

REPORT INFORMATION
  Report Type: 
  Country: None (occurrence: None)
  Receive Date: 20090717
  Receipt Date: 20090709
  Transmission Date: 20100115
  Serious: Yes (Other)
  Sender: FDA-Public Use
  Company Number: IE-PFIZER INC-2009166535

PATIENT

DRUGS (2)
  1. TOLTERODINE TARTRATE [Suspect]
     Dates: start: 20080201
  2. SERTRALINE HCL [Suspect]

REACTIONS (2)
  - ERECTILE DYSFUNCTION [None]
  - MALE GENITAL TRACT OPERATION [None]
